FAERS Safety Report 6834191-X (Version None)
Quarter: 2010Q3

REPORT INFORMATION
  Report Type: 
  Country: None (occurrence: None)
  Receive Date: 20100712
  Receipt Date: 20091125
  Transmission Date: 20110219
  Serious: No
  Sender: FDA-Public Use
  Company Number: US-PFIZER INC-2007025053

PATIENT
  Sex: Female
  Weight: 80.726 kg

DRUGS (7)
  1. CHANTIX [Suspect]
     Indication: SMOKING CESSATION THERAPY
     Dates: start: 20070116
  2. FOSAMAX [Concomitant]
     Indication: BONE DENSITY DECREASED
  3. PLAVIX [Concomitant]
  4. ACTOS [Concomitant]
     Indication: DIABETES MELLITUS
  5. AVANDAMET [Concomitant]
     Indication: DIABETES MELLITUS
  6. TRICOR [Concomitant]
     Indication: BLOOD CHOLESTEROL INCREASED
  7. VYTORIN [Concomitant]
     Indication: BLOOD CHOLESTEROL INCREASED

REACTIONS (7)
  - ABNORMAL DREAMS [None]
  - AGGRESSION [None]
  - AGITATION [None]
  - ANXIETY [None]
  - DYSGEUSIA [None]
  - TOBACCO WITHDRAWAL SYMPTOMS [None]
  - TREMOR [None]
